FAERS Safety Report 17293414 (Version 1)
Quarter: 2020Q1

REPORT INFORMATION
  Report Type: Spontaneous
  Country: US (occurrence: US)
  Receive Date: 20200102
  Receipt Date: 20200102
  Transmission Date: 20200409
  Serious: No
  Sender: FDA-Public Use
  Company Number: None

PATIENT
  Age: 26 Year
  Sex: Female

DRUGS (1)
  1. TRIKAFTA [Suspect]
     Active Substance: ELEXACAFTOR\IVACAFTOR\TEZACAFTOR
     Indication: CYSTIC FIBROSIS
     Dosage: ?          OTHER DOSE:2TABS-1 TAB;OTHER FREQUENCY:QAM - QPM;?
     Route: 048
     Dates: start: 20191212

REACTIONS (3)
  - Abdominal pain upper [None]
  - Blood potassium decreased [None]
  - Product dose omission [None]

NARRATIVE: CASE EVENT DATE: 201912
